FAERS Safety Report 4467383-8 (Version None)
Quarter: 2004Q4

REPORT INFORMATION
  Report Type: 
  Country: None (occurrence: None)
  Receive Date: 20041006
  Receipt Date: 20040927
  Transmission Date: 20050328
  Serious: Yes (Hospitalization)
  Sender: FDA-Public Use
  Company Number: PHBS2004NL12791

PATIENT
  Age: 47 Year
  Sex: Female

DRUGS (6)
  1. NEORAL [Suspect]
     Indication: RENAL TRANSPLANT
     Route: 065
  2. MYCOPHENOLATE MOFETIL [Suspect]
     Indication: RENAL TRANSPLANT
     Route: 065
  3. PREDNISONE [Suspect]
     Indication: RENAL TRANSPLANT
     Route: 065
  4. NIFEDIPINE [Concomitant]
  5. LOSARTAN POTASSIUM [Concomitant]
  6. CEFAZOLIN [Concomitant]

REACTIONS (3)
  - DIARRHOEA [None]
  - GRANULOCYTOPENIA [None]
  - VIRAL UPPER RESPIRATORY TRACT INFECTION [None]
